FAERS Safety Report 5060152-X (Version None)
Quarter: 2006Q3

REPORT INFORMATION
  Report Type: 
  Country: None (occurrence: None)
  Receive Date: 20060724
  Receipt Date: 20060713
  Transmission Date: 20061208
  Serious: Yes (Hospitalization)
  Sender: FDA-Public Use
  Company Number: DE-BRISTOL-MYERS SQUIBB COMPANY-13441910

PATIENT
  Age: 67 Year
  Sex: Female
  Weight: 50 kg

DRUGS (7)
  1. CISPLATIN [Suspect]
     Indication: SMALL CELL LUNG CANCER STAGE UNSPECIFIED
     Dates: start: 20060317
  2. IRINOTECAN HCL [Suspect]
     Dates: start: 20060317
  3. CLEXANE [Concomitant]
     Route: 058
     Dates: start: 20060518
  4. NEBILET [Concomitant]
     Route: 048
     Dates: start: 20020101
  5. ISOKET [Concomitant]
     Dates: start: 20020101
  6. ACC [Concomitant]
     Route: 048
     Dates: start: 20060622
  7. IBUPROFEN [Concomitant]
     Route: 048
     Dates: start: 20060622

REACTIONS (5)
  - BLOOD CREATININE INCREASED [None]
  - DEHYDRATION [None]
  - FATIGUE [None]
  - NAUSEA [None]
  - WEIGHT DECREASED [None]
